FAERS Safety Report 15655612 (Version 1)
Quarter: 2018Q4

REPORT INFORMATION
  Report Type: Spontaneous
  Country: US (occurrence: US)
  Receive Date: 20181125
  Receipt Date: 20181125
  Transmission Date: 20190205
  Serious: No
  Sender: FDA-Public Use
  Company Number: None

PATIENT
  Age: 25 Year
  Sex: Female
  Weight: 83.25 kg

DRUGS (1)
  1. OCREVUS [Suspect]
     Active Substance: OCRELIZUMAB
     Indication: MULTIPLE SCLEROSIS
     Dosage: ?          OTHER FREQUENCY:BI-ANNUAL;?
     Route: 042
     Dates: start: 20181022

REACTIONS (3)
  - Menstruation delayed [None]
  - Uterine pain [None]
  - Adnexa uteri pain [None]

NARRATIVE: CASE EVENT DATE: 20181022
